FAERS Safety Report 7583093-2 (Version None)
Quarter: 2011Q2

REPORT INFORMATION
  Report Type: 
  Country: None (occurrence: None)
  Receive Date: 20110623
  Receipt Date: 20110608
  Transmission Date: 20111010
  Serious: Yes (Hospitalization)
  Sender: FDA-Public Use
  Company Number: DSA_46885_2011

PATIENT
  Age: 76 Year
  Sex: Male

DRUGS (8)
  1. WARFARIN SODIUM [Concomitant]
  2. BISOPROLOL FUMARATE [Concomitant]
  3. SIMVASTATIN [Concomitant]
  4. ETALPHA [Concomitant]
  5. ENALAPRIL MALEATE AND HYDROCHLOROTHIAZIDE [Suspect]
     Indication: ARRHYTHMIA
     Dosage: (DF ORAL)
     Route: 048
     Dates: end: 20110409
  6. FUROSEMIDE [Concomitant]
  7. NOVOLOG [Concomitant]
  8. INSULATARD FLEXPEN [Concomitant]

REACTIONS (1)
  - HYPOKALAEMIA [None]
